FAERS Safety Report 13967366 (Version 1)
Quarter: 2017Q3

REPORT INFORMATION
  Report Type: Spontaneous
  Country: US (occurrence: None)
  Receive Date: 20170914
  Receipt Date: 20170914
  Transmission Date: 20171128
  Serious: Yes (Hospitalization)
  Sender: FDA-Public Use
  Company Number: None

PATIENT
  Age: 70 Year
  Sex: Male
  Weight: 83.3 kg

DRUGS (1)
  1. TEMOZOLOMIDE. [Suspect]
     Active Substance: TEMOZOLOMIDE
     Dates: end: 20170907

REACTIONS (5)
  - Hyperhidrosis [None]
  - Malaise [None]
  - Pulmonary embolism [None]
  - Tremor [None]
  - Syncope [None]

NARRATIVE: CASE EVENT DATE: 20170908
